FAERS Safety Report 20108215 (Version 1)
Quarter: 2021Q4

REPORT INFORMATION
  Report Type: Spontaneous
  Country: US (occurrence: US)
  Receive Date: 20211124
  Receipt Date: 20211124
  Transmission Date: 20220303
  Serious: No
  Sender: FDA-Public Use
  Company Number: US-KERYX BIOPHARMACEUTICALS INC.-2021US008152

PATIENT
  Age: 57 Year
  Sex: Male
  Weight: 82.5 kg

DRUGS (15)
  1. AURYXIA [Suspect]
     Active Substance: TETRAFERRIC TRICITRATE DECAHYDRATE
     Indication: Hyperphosphataemia
     Dosage: 1 GRAM (TABLETS), TID
     Route: 048
     Dates: start: 20210319
  2. AURYXIA [Suspect]
     Active Substance: TETRAFERRIC TRICITRATE DECAHYDRATE
     Dosage: 2 GRAM (TABLETS), TID
     Route: 048
     Dates: start: 20210420
  3. AURYXIA [Suspect]
     Active Substance: TETRAFERRIC TRICITRATE DECAHYDRATE
     Dosage: 1 GRAM
     Route: 048
  4. AURYXIA [Suspect]
     Active Substance: TETRAFERRIC TRICITRATE DECAHYDRATE
     Dosage: 2 GRAMS WITH MEALS
     Route: 048
     Dates: start: 20210511
  5. MIRCERA [Concomitant]
     Active Substance: METHOXY POLYETHYLENE GLYCOL-EPOETIN BETA
     Dosage: 0.3 MILLILITER, Q4WK
     Route: 042
     Dates: start: 20210422
  6. ATORVASTATIN CALCIUM [Concomitant]
     Active Substance: ATORVASTATIN CALCIUM
     Dosage: 10 MILLIGRAM, QD
     Route: 048
     Dates: start: 20201012
  7. COREG [Concomitant]
     Active Substance: CARVEDILOL
     Dosage: 6.25 MILLIGRAM, QD
     Route: 048
     Dates: start: 20210309
  8. VITAMIN D                          /00318501/ [Concomitant]
     Dosage: 25 MICROGRAM, QD
     Route: 048
     Dates: start: 20200824
  9. FAMOTIDINE [Concomitant]
     Active Substance: FAMOTIDINE
     Dosage: 20 MILLIGRAM, QHS
     Route: 048
     Dates: start: 20200824
  10. LIDOCAINE\PRILOCAINE [Concomitant]
     Active Substance: LIDOCAINE\PRILOCAINE
     Dosage: 4.6 GRAM, 3 TIMES/WK
     Dates: start: 20210216
  11. MINERALS\VITAMINS [Concomitant]
     Active Substance: MINERALS\VITAMINS
     Dosage: 1 CAPSULE, QD
     Route: 048
     Dates: start: 20200824
  12. NIFEDIPINE [Concomitant]
     Active Substance: NIFEDIPINE
     Dosage: 60 MILLIGRAM (TABLET), QD
     Route: 048
     Dates: start: 20200824
  13. ZOFRAN                             /00955301/ [Concomitant]
     Dosage: 4 MILLIGRAM (TABLET), Q8H
     Route: 048
     Dates: start: 20200824
  14. HYDROCHLOROTHIAZIDE\VALSARTAN [Concomitant]
     Active Substance: HYDROCHLOROTHIAZIDE\VALSARTAN
     Dosage: 1 TABLET, QD
     Route: 048
     Dates: start: 20200824
  15. VENLAFAXINE HCL [Concomitant]
     Active Substance: VENLAFAXINE HYDROCHLORIDE
     Dosage: 150 MILLIGRAM (CAPSULE), QD
     Route: 048
     Dates: start: 20200929

REACTIONS (2)
  - Urticaria [Recovering/Resolving]
  - Abscess [Unknown]

NARRATIVE: CASE EVENT DATE: 20210410
